FAERS Safety Report 6845541-2 (Version None)
Quarter: 2010Q3

REPORT INFORMATION
  Report Type: 
  Country: None (occurrence: None)
  Receive Date: 20100715
  Receipt Date: 20070820
  Transmission Date: 20110219
  Serious: No
  Sender: FDA-Public Use
  Company Number: US-PFIZER INC-2007072382

PATIENT
  Sex: Female
  Weight: 87.7 kg

DRUGS (4)
  1. CHANTIX [Suspect]
     Indication: SMOKING CESSATION THERAPY
     Dates: start: 20070812
  2. BENICAR [Concomitant]
  3. LEXAPRO [Concomitant]
  4. PREVACID [Concomitant]

REACTIONS (3)
  - DYSGEUSIA [None]
  - ENERGY INCREASED [None]
  - THERAPEUTIC RESPONSE UNEXPECTED [None]
